FAERS Safety Report 16437582 (Version 1)
Quarter: 2019Q2

REPORT INFORMATION
  Report Type: Spontaneous
  Country: CN (occurrence: CN)
  Receive Date: 20190615
  Receipt Date: 20190615
  Transmission Date: 20190711
  Serious: Yes (Hospitalization, Other)
  Sender: FDA-Public Use
  Company Number: CN-MICRO LABS LIMITED-ML2019-01429

PATIENT
  Age: 61 Year
  Sex: Female

DRUGS (1)
  1. GLIMEPIRIDE. [Suspect]
     Active Substance: GLIMEPIRIDE
     Dosage: GLIMEPIRIDE FOR 10 YEARS

REACTIONS (1)
  - Insulin autoimmune syndrome [Unknown]
